FAERS Safety Report 4507031-1 (Version None)
Quarter: 2004Q4

REPORT INFORMATION
  Report Type: 
  Country: None (occurrence: None)
  Receive Date: 20041122
  Receipt Date: 20041116
  Transmission Date: 20050328
  Serious: Yes (Hospitalization)
  Sender: FDA-Public Use
  Company Number: FR-MERCK-0411FRA00056

PATIENT
  Age: 83 Year
  Sex: Male

DRUGS (9)
  1. SINGULAIR [Suspect]
     Indication: ASTHMA
     Route: 048
     Dates: start: 20020101, end: 20040930
  2. PENTOXIFYLLINE [Suspect]
     Route: 048
     Dates: start: 19890101, end: 20041001
  3. SIMVASTATIN [Suspect]
     Route: 048
     Dates: start: 19940101, end: 20040929
  4. ASPIRIN LYSINE [Concomitant]
     Route: 048
  5. DIHYDROERGOCRISTINE MESYLATE AND RAUBASINE [Concomitant]
     Route: 065
  6. FLUOXETINE HYDROCHLORIDE [Concomitant]
     Indication: DEPRESSION
     Route: 048
  7. MIANSERIN HYDROCHLORIDE [Concomitant]
     Route: 048
  8. FLUTICASONE PROPIONATE [Concomitant]
     Route: 065
  9. FORMOTEROL FUMARATE [Concomitant]
     Route: 065

REACTIONS (4)
  - CARDIAC FAILURE [None]
  - DRUG HYPERSENSITIVITY [None]
  - EJECTION FRACTION DECREASED [None]
  - INTERSTITIAL LUNG DISEASE [None]
